FAERS Safety Report 4742354-2 (Version None)
Quarter: 2005Q3

REPORT INFORMATION
  Report Type: 
  Country: None (occurrence: None)
  Receive Date: 20050808
  Receipt Date: 20050727
  Transmission Date: 20060218
  Serious: Yes (Hospitalization, Other)
  Sender: FDA-Public Use
  Company Number: USA0507103531

PATIENT
  Age: 71 Year
  Sex: Male

DRUGS (6)
  1. CYMBALTA [Suspect]
     Indication: PHANTOM PAIN
     Dosage: 60 MG DAY
     Dates: start: 20050302, end: 20050612
  2. ANTI-INFLAMMATORIES [Concomitant]
  3. ASPIRIN [Concomitant]
  4. GLUCOTROL [Concomitant]
  5. LIPITOR [Concomitant]
  6. VERAPAMIL [Concomitant]

REACTIONS (2)
  - GASTROINTESTINAL HAEMORRHAGE [None]
  - RECTAL HAEMORRHAGE [None]
